FAERS Safety Report 12631997 (Version 2)
Quarter: 2016Q3

REPORT INFORMATION
  Report Type: Spontaneous
  Country: US (occurrence: US)
  Receive Date: 20160808
  Receipt Date: 20160808
  Transmission Date: 20161109
  Serious: No
  Sender: FDA-Public Use
  Company Number: US-BEH-2016061617

PATIENT
  Sex: Female
  Weight: 59 kg

DRUGS (15)
  1. HIZENTRA [Suspect]
     Active Substance: HUMAN IMMUNOGLOBULIN G
     Indication: IMMUNODEFICIENCY COMMON VARIABLE
     Route: 058
  2. EPIPEN [Concomitant]
     Active Substance: EPINEPHRINE
  3. ZITHROMAX [Concomitant]
     Active Substance: AZITHROMYCIN DIHYDRATE
  4. HIZENTRA [Suspect]
     Active Substance: HUMAN IMMUNOGLOBULIN G
     Route: 058
  5. LIDOCAINE/PRILOCAINE [Concomitant]
     Active Substance: LIDOCAINE\PRILOCAINE
  6. LACTAID [Concomitant]
     Active Substance: LACTASE
  7. XOPENEX [Concomitant]
     Active Substance: LEVALBUTEROL HYDROCHLORIDE
  8. HIZENTRA [Suspect]
     Active Substance: HUMAN IMMUNOGLOBULIN G
     Route: 058
  9. NASONEX [Concomitant]
     Active Substance: MOMETASONE FUROATE
  10. DIPHENHYDRAMINE. [Concomitant]
     Active Substance: DIPHENHYDRAMINE
  11. PULMICORT TURBUHALER [Concomitant]
     Active Substance: BUDESONIDE
  12. ROCEPHIN [Concomitant]
     Active Substance: CEFTRIAXONE SODIUM
  13. PREDNISONE. [Concomitant]
     Active Substance: PREDNISONE
  14. SINGULAIR [Concomitant]
     Active Substance: MONTELUKAST SODIUM
  15. CLARITIN [Concomitant]
     Active Substance: LORATADINE

REACTIONS (1)
  - Sinusitis [Unknown]
